FAERS Safety Report 17828925 (Version 1)
Quarter: 2020Q2

REPORT INFORMATION
  Report Type: Spontaneous
  Country: US (occurrence: US)
  Receive Date: 20200527
  Receipt Date: 20200527
  Transmission Date: 20200714
  Serious: Yes (Disabling, Other)
  Sender: FDA-Public Use
  Company Number: US-SA-2020SA135566

PATIENT

DRUGS (1)
  1. ZANTAC [Suspect]
     Active Substance: RANITIDINE HYDROCHLORIDE
     Dosage: UNK
     Dates: start: 2016

REACTIONS (4)
  - Anxiety [Unknown]
  - Impaired work ability [Unknown]
  - Injury [Unknown]
  - Colon cancer [Unknown]

NARRATIVE: CASE EVENT DATE: 201806
